FAERS Safety Report 4339028-9 (Version None)
Quarter: 2004Q2

REPORT INFORMATION
  Report Type: 
  Country: None (occurrence: None)
  Receive Date: 20040409
  Receipt Date: 20040330
  Transmission Date: 20050107
  Serious: Yes (Other)
  Sender: FDA-Public Use
  Company Number: US-JNJFOC-20031201734

PATIENT
  Age: 60 Year
  Sex: Female
  Weight: 77.1115 kg

DRUGS (14)
  1. REMICADE [Suspect]
     Indication: RHEUMATOID ARTHRITIS
     Dosage: SEE IMAGE
     Dates: start: 20031001
  2. REMICADE [Suspect]
     Indication: RHEUMATOID ARTHRITIS
     Dosage: SEE IMAGE
     Dates: start: 20031212
  3. REMICADE [Suspect]
     Indication: RHEUMATOID ARTHRITIS
     Dosage: SEE IMAGE
     Dates: start: 20040206
  4. METHOTREXATE [Concomitant]
  5. EVISTA [Concomitant]
  6. COZAAR [Concomitant]
  7. METFORMIN HCL [Concomitant]
  8. IBUPROFEN [Concomitant]
  9. FOLIC ACID [Concomitant]
  10. CALCIUM (CALCIUM) [Concomitant]
  11. VITAMINS (VITAMINS) [Concomitant]
  12. VITAMIN E [Concomitant]
  13. ANTACID (ANTACIDS) [Concomitant]
  14. ASPRIN (ACETYLSALICYLIC ACID) [Concomitant]

REACTIONS (6)
  - CHEST DISCOMFORT [None]
  - CONDITION AGGRAVATED [None]
  - DYSPNOEA [None]
  - NOCTURNAL DYSPNOEA [None]
  - ORTHOPNOEA [None]
  - REFLUX OESOPHAGITIS [None]
